FAERS Safety Report 8201489-2 (Version None)
Quarter: 2012Q1

REPORT INFORMATION
  Report Type: 
  Country: None (occurrence: None)
  Receive Date: 20120308
  Receipt Date: 20120227
  Transmission Date: 20120608
  Serious: Yes (Hospitalization)
  Sender: FDA-Public Use
  Company Number: 1198425

PATIENT
  Age: 29 Year
  Sex: Female

DRUGS (8)
  1. (THERAPEUTIC RADIOPHARMACEUTICALS) [Suspect]
     Indication: CERVIX CARCINOMA
  2. CARBOPLATIN [Suspect]
     Indication: CERVIX CARCINOMA
     Dosage: AUC 5 IN 1 HOUR, INTRAVENOUS (NOT OTHERWISE SPECIFIED)
     Route: 042
  3. PHENERGAN [Concomitant]
  4. PACLITAXEL [Suspect]
     Indication: CERVIX CARCINOMA
     Dosage: 155 MG/M^2 OVER 3 HOURS, INTRAVENOUS (NOT OTHERWISE SPECIFIED)
     Route: 042
  5. DEXAMETHASONE [Concomitant]
  6. CISPLATIN [Suspect]
     Indication: CERVIX CARCINOMA
     Dosage: 440 MG/M^2 WEEKLY FOR 5 DOSES IN 1 HOUR, INTRAVENOUS (NOT OTHERWISE SPECIFIED)
     Route: 042
  7. RANITIDINE [Concomitant]
  8. (ANTIEMETICS AND ANTINAUSEANTS) [Concomitant]

REACTIONS (2)
  - PYREXIA [None]
  - PAIN [None]
